FAERS Safety Report 22819359 (Version 5)
Quarter: 2023Q4

REPORT INFORMATION
  Report Type: Spontaneous
  Country: HU (occurrence: HU)
  Receive Date: 20230814
  Receipt Date: 20231212
  Transmission Date: 20240109
  Serious: Yes (Hospitalization)
  Sender: FDA-Public Use
  Company Number: HU-BIOGEN-2023BI01220976

PATIENT
  Age: 34 Year
  Sex: Female
  Weight: 78 kg

DRUGS (16)
  1. PLEGRIDY [Suspect]
     Active Substance: PEGINTERFERON BETA-1A
     Indication: Relapsing-remitting multiple sclerosis
     Dosage: 125 MICROGRAM, 1 X IN EVERY 2 WEEKS
     Route: 050
     Dates: start: 20210429
  2. PLEGRIDY [Suspect]
     Active Substance: PEGINTERFERON BETA-1A
     Route: 050
     Dates: start: 20210429, end: 2021
  3. PLEGRIDY [Suspect]
     Active Substance: PEGINTERFERON BETA-1A
     Route: 050
     Dates: start: 20210513, end: 202105
  4. PLEGRIDY [Suspect]
     Active Substance: PEGINTERFERON BETA-1A
     Route: 050
     Dates: start: 20210527
  5. PLEGRIDY [Suspect]
     Active Substance: PEGINTERFERON BETA-1A
     Route: 050
     Dates: start: 20210511
  6. BROMOCRIPTINE [Concomitant]
     Active Substance: BROMOCRIPTINE
     Indication: Product used for unknown indication
     Dosage: 1 X 1/2
     Route: 050
     Dates: start: 20210511, end: 20220202
  7. UTROGESTAN [Concomitant]
     Active Substance: PROGESTERONE
     Indication: Product used for unknown indication
     Dosage: 3 X 1
     Route: 050
     Dates: start: 20210109, end: 20220516
  8. LEVOTHYROXINE SODIUM [Concomitant]
     Active Substance: LEVOTHYROXINE SODIUM
     Indication: Product used for unknown indication
     Dosage: 1X1/2
     Route: 050
     Dates: start: 20210511
  9. LEVOTHYROXINE SODIUM [Concomitant]
     Active Substance: LEVOTHYROXINE SODIUM
     Dosage: HALF
     Route: 050
     Dates: start: 20210628
  10. LEVOTHYROXINE SODIUM [Concomitant]
     Active Substance: LEVOTHYROXINE SODIUM
     Dosage: 1X1
     Route: 050
     Dates: start: 20210906
  11. LEVOTHYROXINE SODIUM [Concomitant]
     Active Substance: LEVOTHYROXINE SODIUM
     Dosage: 1X1/2
     Route: 050
     Dates: start: 20211024
  12. ENOXAPARIN SODIUM [Concomitant]
     Active Substance: ENOXAPARIN SODIUM
     Indication: Product used for unknown indication
     Dosage: DAILY
     Route: 050
  13. OXYTOCIN [Concomitant]
     Active Substance: OXYTOCIN
     Indication: Product used for unknown indication
     Route: 050
  14. Algopyrin [Concomitant]
     Indication: Product used for unknown indication
     Route: 050
  15. Algopyrin [Concomitant]
     Dosage: 3X1
     Route: 050
  16. Globifer (NOS) [Concomitant]
     Indication: Product used for unknown indication
     Dosage: 1X1
     Route: 050

REACTIONS (4)
  - Foetal heart rate abnormal [Recovered/Resolved]
  - Umbilical cord around neck [Recovered/Resolved]
  - Maternal exposure during pregnancy [Recovered/Resolved]
  - Premature baby [Recovered/Resolved]

NARRATIVE: CASE EVENT DATE: 20220214
